FAERS Safety Report 8836687 (Version 1)
Quarter: 2012Q4

REPORT INFORMATION
  Report Type: Spontaneous
  Country: FR (occurrence: None)
  Receive Date: 20121009
  Receipt Date: 20121009
  Transmission Date: 20130627
  Serious: Yes (Death, Hospitalization)
  Sender: FDA-Public Use
  Company Number: IMP_06014_2012

PATIENT
  Age: 35 Year
  Sex: Female

DRUGS (1)
  1. CHLOROQUINE [Suspect]

REACTIONS (12)
  - Hepatic failure [None]
  - Pulmonary oedema [None]
  - Brain death [None]
  - Convulsion [None]
  - Toxicity to various agents [None]
  - Electrocardiogram QRS complex prolonged [None]
  - Stress cardiomyopathy [None]
  - Cardiogenic shock [None]
  - Multi-organ failure [None]
  - Disseminated intravascular coagulation [None]
  - Haemolysis [None]
  - Renal failure [None]
